FAERS Safety Report 6853832-4 (Version None)
Quarter: 2010Q3

REPORT INFORMATION
  Report Type: 
  Country: None (occurrence: None)
  Receive Date: 20100717
  Receipt Date: 20071218
  Transmission Date: 20110219
  Serious: No
  Sender: FDA-Public Use
  Company Number: US-PFIZER INC-2007107384

PATIENT
  Sex: Female
  Weight: 76.7 kg

DRUGS (3)
  1. CHANTIX [Suspect]
     Indication: SMOKING CESSATION THERAPY
     Dates: start: 20070917
  2. VYTORIN [Concomitant]
  3. AVANDAMET [Concomitant]

REACTIONS (2)
  - EPISTAXIS [None]
  - HEADACHE [None]
